FAERS Safety Report 10421461 (Version 2)
Quarter: 2014Q3

REPORT INFORMATION
  Report Type: Spontaneous
  Country: US (occurrence: US)
  Receive Date: 20140901
  Receipt Date: 20140909
  Transmission Date: 20150326
  Serious: Yes (Hospitalization)
  Sender: FDA-Public Use
  Company Number: US-UNITED THERAPEUTICS-UNT-2014-006416

PATIENT
  Age: 39 Year
  Sex: Male
  Weight: 117.91 kg

DRUGS (1)
  1. REMODULIN [Suspect]
     Active Substance: TREPROSTINIL
     Indication: COR PULMONALE CHRONIC
     Dosage: .045 ?G/KG, CONTINUING
     Route: 041
     Dates: start: 20140117

REACTIONS (4)
  - Flushing [Unknown]
  - Dyspnoea [Unknown]
  - Device malfunction [Unknown]
  - Medication error [Unknown]

NARRATIVE: CASE EVENT DATE: 20140821
